FAERS Safety Report 16904233 (Version 1)
Quarter: 2019Q4

REPORT INFORMATION
  Report Type: Spontaneous
  Country: CA (occurrence: CA)
  Receive Date: 20191010
  Receipt Date: 20191010
  Transmission Date: 20200122
  Serious: Yes (Other)
  Sender: FDA-Public Use
  Company Number: CA-BAUSCH-BL-2019-056865

PATIENT
  Age: 82 Year
  Sex: Male

DRUGS (2)
  1. PROLENSA [Suspect]
     Active Substance: BROMFENAC SODIUM
     Indication: CYSTOID MACULAR OEDEMA
     Dosage: 3 ML
     Route: 047
     Dates: start: 20181003, end: 20190821
  2. PROLENSA [Suspect]
     Active Substance: BROMFENAC SODIUM
     Indication: PRODUCT USE IN UNAPPROVED INDICATION

REACTIONS (3)
  - Product use in unapproved indication [Unknown]
  - Ulcerative keratitis [Recovered/Resolved]
  - Corneal perforation [Recovered/Resolved]

NARRATIVE: CASE EVENT DATE: 20181003
